FAERS Safety Report 8936718 (Version 2)
Quarter: 2013Q1

REPORT INFORMATION
  Report Type: Spontaneous
  Country: FR (occurrence: FR)
  Receive Date: 20121130
  Receipt Date: 20130117
  Transmission Date: 20140127
  Serious: Yes (Hospitalization)
  Sender: FDA-Public Use
  Company Number: FR-EISAI INC-E3810-06097-SPO-FR

PATIENT
  Age: 78 Year
  Sex: Female

DRUGS (4)
  1. PARIET (RABEPRAZOLE) [Suspect]
     Indication: GASTROINTESTINAL DISORDER
     Route: 065
     Dates: start: 2012
  2. PARIET (RABEPRAZOLE) [Suspect]
     Indication: ABDOMINAL PAIN UPPER
  3. PARIET (RABEPRAZOLE) [Suspect]
     Indication: SALIVARY HYPERSECRETION
  4. PARIET (RABEPRAZOLE) [Suspect]
     Indication: GASTROOESOPHAGEAL REFLUX DISEASE

REACTIONS (1)
  - Paralysis [Not Recovered/Not Resolved]
